FAERS Safety Report 4922128-X (Version None)
Quarter: 2006Q1

REPORT INFORMATION
  Report Type: 
  Country: None (occurrence: None)
  Receive Date: 20060224
  Receipt Date: 20060214
  Transmission Date: 20060701
  Serious: Yes (Hospitalization, Other)
  Sender: FDA-Public Use
  Company Number: TW-ABBOTT-06P-153-0325253-00

PATIENT
  Age: 43 Year
  Sex: Female
  Weight: 53 kg

DRUGS (9)
  1. ALLOPURINOL [Suspect]
     Indication: HYPERURICAEMIA
     Dates: start: 20020127, end: 20020201
  2. ALLOPURINOL [Suspect]
     Indication: ARTHRALGIA
     Dates: start: 20020124, end: 20020126
  3. ALLOPURINOL [Suspect]
     Indication: JOINT SWELLING
  4. HYDROTALCITE [Concomitant]
     Indication: DRUG USE FOR UNKNOWN INDICATION
  5. VITAMIN B-COMPLEX WITH VITAMIN C [Concomitant]
     Indication: DRUG USE FOR UNKNOWN INDICATION
  6. CALCIUM CARBONATE [Concomitant]
     Indication: DRUG USE FOR UNKNOWN INDICATION
  7. AMLODIPINE [Concomitant]
     Indication: DRUG USE FOR UNKNOWN INDICATION
     Dates: start: 20010926, end: 20020129
  8. FOSINOPRIL SODIUM [Concomitant]
     Indication: DRUG USE FOR UNKNOWN INDICATION
     Dates: start: 20020130, end: 20020219
  9. PREDNISOLONE [Concomitant]
     Indication: RENAL IMPAIRMENT
     Dosage: 10-20 MG/DAY
     Dates: start: 20010501

REACTIONS (3)
  - APLASIA PURE RED CELL [None]
  - DRUG HYPERSENSITIVITY [None]
  - GASTRITIS HAEMORRHAGIC [None]
